FAERS Safety Report 5971637-3 (Version None)
Quarter: 2008Q4

REPORT INFORMATION
  Report Type: 
  Country: None (occurrence: None)
  Receive Date: 20081201
  Receipt Date: 20081124
  Transmission Date: 20090506
  Serious: Yes (Life-Threatening, Hospitalization)
  Sender: FDA-Public Use
  Company Number: DE-BAYER-200831383GPV

PATIENT
  Age: 41 Year
  Sex: Male

DRUGS (5)
  1. AVELOX [Suspect]
     Indication: INFECTION
     Route: 042
  2. AVELOX [Suspect]
     Route: 042
  3. AVELOX [Suspect]
     Route: 048
  4. ASPIRIN [Concomitant]
     Indication: DRUG USE FOR UNKNOWN INDICATION
     Route: 042
  5. AUGMENTIN '125' [Concomitant]
     Indication: INFECTION
     Route: 065

REACTIONS (2)
  - RENAL FAILURE [None]
  - RHABDOMYOLYSIS [None]
